FAERS Safety Report 18362229 (Version 6)
Quarter: 2020Q4

REPORT INFORMATION
  Report Type: Report from Study
  Country: None (occurrence: US)
  Receive Date: 20201009
  Receipt Date: 20201208
  Transmission Date: 20210114
  Serious: Yes (Hospitalization)
  Sender: FDA-Public Use
  Company Number: US-ABBVIE-20K-163-3599792-00

PATIENT
  Sex: Male

DRUGS (1)
  1. VENCLEXTA [Suspect]
     Active Substance: VENETOCLAX
     Indication: ACUTE MYELOID LEUKAEMIA
     Dosage: TAKE 4 TABLETS BY MOUTH EVERY DAY
     Route: 048

REACTIONS (6)
  - Thrombosis [Unknown]
  - Off label use [Unknown]
  - Pneumonia [Recovering/Resolving]
  - Infection [Unknown]
  - Sepsis [Recovering/Resolving]
  - Confusional state [Unknown]
